FAERS Safety Report 11529364 (Version 1)
Quarter: 2015Q3

REPORT INFORMATION
  Report Type: Spontaneous
  Country: FR (occurrence: FR)
  Receive Date: 20150921
  Receipt Date: 20150921
  Transmission Date: 20151125
  Serious: Yes (Other)
  Sender: FDA-Public Use
  Company Number: PHHY2015FR110924

PATIENT
  Sex: Female

DRUGS (1)
  1. AFINITOR [Suspect]
     Active Substance: EVEROLIMUS
     Indication: BREAST CANCER
     Dosage: 10 MG, QD (1 DF)
     Route: 048
     Dates: end: 20150911

REACTIONS (6)
  - Face oedema [Recovering/Resolving]
  - Thrombosis [Unknown]
  - Superior vena cava syndrome [Unknown]
  - Oedema peripheral [Recovering/Resolving]
  - Muscle spasms [Unknown]
  - Localised oedema [Recovering/Resolving]
